FAERS Safety Report 8435737-0 (Version None)
Quarter: 2012Q2

REPORT INFORMATION
  Report Type: 
  Country: None (occurrence: None)
  Receive Date: 20120614
  Receipt Date: 20120608
  Transmission Date: 20120825
  Serious: Yes (Hospitalization)
  Sender: FDA-Public Use
  Company Number: US-AMGEN-USASP2012001248

PATIENT
  Sex: Female

DRUGS (2)
  1. EPOGEN [Suspect]
     Indication: ANAEMIA
     Dosage: 2000 IU, 3 TIMES/WK
     Dates: end: 20120101
  2. EPOGEN [Suspect]
     Indication: RENAL FAILURE

REACTIONS (2)
  - HAEMORRHAGE [None]
  - LABOUR COMPLICATION [None]
